FAERS Safety Report 13989629 (Version 1)
Quarter: 2017Q3

REPORT INFORMATION
  Report Type: Spontaneous
  Country: IT (occurrence: IT)
  Receive Date: 20170920
  Receipt Date: 20170920
  Transmission Date: 20171128
  Serious: Yes (Other)
  Sender: FDA-Public Use
  Company Number: IT-ASPEN PHARMA TRADING LIMITED US-AS-2017-006601

PATIENT
  Age: 4 Year
  Sex: Male

DRUGS (8)
  1. THYMOGLOBULINE [Suspect]
     Active Substance: LAPINE T-LYMPHOCYTE IMMUNE GLOBULIN
     Indication: BONE MARROW CONDITIONING REGIMEN
     Dosage: 2.5 MG/KG OF BODY WEIGHT
     Route: 041
  2. BUSULFAN. [Suspect]
     Active Substance: BUSULFAN
     Indication: BONE MARROW CONDITIONING REGIMEN
     Dosage: 5 MG/KG OF BODY WEIGHT
     Route: 042
  3. CICLOSPORIN [Suspect]
     Active Substance: CYCLOSPORINE
     Indication: PROPHYLAXIS AGAINST GRAFT VERSUS HOST DISEASE
     Dosage: 5 MG/KG OF BODY WEIGHT
     Route: 042
  4. MYCOPHENOLIC ACID. [Suspect]
     Active Substance: MYCOPHENOLIC ACID
     Indication: THROMBOTIC THROMBOCYTOPENIC PURPURA
     Route: 065
  5. RITUXIMAB. [Suspect]
     Active Substance: RITUXIMAB
     Indication: EPSTEIN-BARR VIRUS INFECTION
     Route: 065
  6. METHYLPREDNISOLONE. [Suspect]
     Active Substance: METHYLPREDNISOLONE
     Indication: COOMBS POSITIVE HAEMOLYTIC ANAEMIA
     Dosage: 5 MG/KG OF BODY WEIGHT
     Route: 042
  7. METHYLPREDNISOLONE. [Suspect]
     Active Substance: METHYLPREDNISOLONE
     Dosage: 10 MG/KG OF BODY WEIGHT
     Route: 042
  8. CYCLOPHOSPHAMIDE. [Suspect]
     Active Substance: CYCLOPHOSPHAMIDE
     Indication: BONE MARROW CONDITIONING REGIMEN
     Dosage: 50 MG/KG OF BODY WEIGHT
     Route: 041

REACTIONS (6)
  - Keratitis [Recovered/Resolved with Sequelae]
  - Blindness [Recovered/Resolved with Sequelae]
  - Graft versus host disease [Recovered/Resolved with Sequelae]
  - Thrombotic thrombocytopenic purpura [Recovered/Resolved with Sequelae]
  - Posterior reversible encephalopathy syndrome [Recovered/Resolved with Sequelae]
  - Coombs positive haemolytic anaemia [Recovered/Resolved with Sequelae]
